FAERS Safety Report 9325554 (Version 1)
Quarter: 2013Q2

REPORT INFORMATION
  Report Type: Spontaneous
  Country: US (occurrence: None)
  Receive Date: 20130531
  Receipt Date: 20130531
  Transmission Date: 20140414
  Serious: Yes (Life-Threatening)
  Sender: FDA-Public Use
  Company Number: None

PATIENT
  Age: 65 Year
  Sex: Male
  Weight: 90 kg

DRUGS (1)
  1. IOPROMIDE [Suspect]
     Indication: SCAN
     Dates: start: 20121206, end: 20121206

REACTIONS (1)
  - Anaphylactic reaction [None]
